FAERS Safety Report 6612677-0 (Version None)
Quarter: 2010Q1

REPORT INFORMATION
  Report Type: 
  Country: None (occurrence: None)
  Receive Date: 20100303
  Receipt Date: 20100302
  Transmission Date: 20100710
  Serious: Yes (Death)
  Sender: FDA-Public Use
  Company Number: US-ROXANE LABORATORIES, INC.-2010-RO-00224RO

PATIENT
  Sex: Male

DRUGS (1)
  1. METHADONE [Suspect]

REACTIONS (1)
  - THERAPEUTIC AGENT TOXICITY [None]
